FAERS Safety Report 9914303 (Version 1)
Quarter: 2014Q1

REPORT INFORMATION
  Report Type: Spontaneous
  Country: FI (occurrence: None)
  Receive Date: 20140218
  Receipt Date: 20140218
  Transmission Date: 20141002
  Serious: Yes (Life-Threatening)
  Sender: FDA-Public Use
  Company Number: FI-20140003

PATIENT
  Age: 82 Year
  Sex: Female

DRUGS (6)
  1. DOTAREM [Suspect]
     Indication: NUCLEAR MAGNETIC RESONANCE IMAGING
     Dosage: 30 ML (30 ML, 1 IN 1 D) INTRAVENOUS (NOT OTHERWISE SPECIFIED)
     Route: 042
     Dates: start: 20140113, end: 20140113
  2. PRIMASPAN (ACETYLSASLICYLIC ACID (ACETYLSALICYLIC ACID) [Concomitant]
  3. EMCONCOR (BISOPROLOL FURMARATE) (BISOPROLOL FUMARATE) [Concomitant]
  4. CARDACE (RAMIPRIL) (RAMIPRIL) [Concomitant]
  5. LIPITOR (ATORVASTATIN CALCIUM) (ATORVASTATIN CALCIUM) [Concomitant]
  6. SODIUM CHLORIDE (SODIUM CHLORIDE) (SODIUM CHLORIDE) [Concomitant]

REACTIONS (3)
  - Pulmonary oedema [None]
  - Tachypnoea [None]
  - Hypertension [None]
